FAERS Safety Report 23555711 (Version 1)
Quarter: 2024Q1

REPORT INFORMATION
  Report Type: Spontaneous
  Country: GB (occurrence: GB)
  Receive Date: 20240222
  Receipt Date: 20240222
  Transmission Date: 20240410
  Serious: Yes (Other)
  Sender: FDA-Public Use
  Company Number: None

PATIENT
  Age: 72 Year
  Sex: Female
  Weight: 82 kg

DRUGS (1)
  1. EZETIMIBE [Suspect]
     Active Substance: EZETIMIBE
     Indication: Blood cholesterol increased
     Dosage: 10 MG, QD
     Route: 065

REACTIONS (16)
  - Oropharyngeal pain [Recovering/Resolving]
  - Chromaturia [Not Recovered/Not Resolved]
  - Oral pain [Recovering/Resolving]
  - Pyrexia [Recovering/Resolving]
  - Flatulence [Recovering/Resolving]
  - Muscle spasms [Recovering/Resolving]
  - Decreased appetite [Not Recovered/Not Resolved]
  - Myalgia [Recovering/Resolving]
  - Diarrhoea [Recovered/Resolved]
  - Headache [Not Recovered/Not Resolved]
  - Abdominal pain [Not Recovered/Not Resolved]
  - Abdominal pain [Not Recovered/Not Resolved]
  - Fatigue [Recovering/Resolving]
  - Dizziness [Recovering/Resolving]
  - Arthralgia [Not Recovered/Not Resolved]
  - Back pain [Not Recovered/Not Resolved]

NARRATIVE: CASE EVENT DATE: 20240201
